FAERS Safety Report 17485274 (Version 2)
Quarter: 2020Q2

REPORT INFORMATION
  Report Type: Report from Study
  Country: US (occurrence: US)
  Receive Date: 20200302
  Receipt Date: 20200407
  Transmission Date: 20200713
  Serious: Yes (Hospitalization, Other)
  Sender: FDA-Public Use
  Company Number: US-ACTELION-A-US2020-202414

PATIENT
  Sex: Female
  Weight: 51.25 kg

DRUGS (2)
  1. OPSUMIT [Suspect]
     Active Substance: MACITENTAN
     Indication: PULMONARY ARTERIAL HYPERTENSION
     Dosage: 10 MG, QD
     Route: 048
     Dates: start: 202001
  2. SILDENAFIL CITRATE. [Concomitant]
     Active Substance: SILDENAFIL CITRATE

REACTIONS (6)
  - Anaemia [Unknown]
  - Therapy non-responder [Unknown]
  - Transfusion [Unknown]
  - Blood count abnormal [Unknown]
  - Hepatic cirrhosis [Unknown]
  - Oedema [Unknown]
